FAERS Safety Report 25480624 (Version 4)
Quarter: 2025Q4

REPORT INFORMATION
  Report Type: Spontaneous
  Country: JP (occurrence: JP)
  Receive Date: 20250625
  Receipt Date: 20251128
  Transmission Date: 20260117
  Serious: Yes (Other)
  Sender: BRISTOL-MYERS SQUIBB COMPANY
  Company Number: JP-TAIHO-2025-006508

PATIENT
  Age: 79 Year
  Sex: Male

DRUGS (3)
  1. ABRAXANE [Suspect]
     Active Substance: PACLITAXEL
     Indication: Lung adenocarcinoma
     Dosage: NI, FULL DOSE, 1 CYCLE, WITH SUSPENSION, COMBINATION THERAPY
     Route: 041
  2. ABRAXANE [Suspect]
     Active Substance: PACLITAXEL
     Dosage: NI, ADMINISTERED ALONE, 1 CYCLE
     Route: 041
  3. CARBOPLATIN [Suspect]
     Active Substance: CARBOPLATIN
     Indication: Lung adenocarcinoma
     Dosage: NI, 1 CYCLE

REACTIONS (2)
  - Febrile neutropenia [Recovered/Resolved]
  - Erythema multiforme [Recovered/Resolved]
